FAERS Safety Report 4970510-7 (Version None)
Quarter: 2006Q2

REPORT INFORMATION
  Report Type: 
  Country: None (occurrence: None)
  Receive Date: 20060411
  Receipt Date: 20060411
  Transmission Date: 20061013
  Serious: Yes (Life-Threatening)
  Sender: FDA-Public Use
  Company Number: None

PATIENT
  Age: 55 Year
  Sex: 0
  Weight: 77 kg

DRUGS (6)
  1. DAUNORUBICIN HCL [Suspect]
     Indication: ACUTE MYELOID LEUKAEMIA
     Dosage: 90 MG /M2 DAILY FOR 3 DAYS IV
     Route: 042
     Dates: start: 20060329, end: 20060401
  2. CYTARABINE [Suspect]
     Indication: ACUTE MYELOID LEUKAEMIA
     Dosage: 100 MG/M2 CONTINUOUS INFUSION 7 DAYS IV
     Route: 042
     Dates: start: 20060329, end: 20060406
  3. CASPOFUNGIN [Concomitant]
  4. VANCOMYCIN [Concomitant]
  5. CIPROFLOXACIN HCL [Concomitant]
  6. LASIX [Concomitant]

REACTIONS (19)
  - ABDOMINAL PAIN UPPER [None]
  - ANGIOPATHY [None]
  - ATRIAL FIBRILLATION [None]
  - CARDIAC VENTRICULAR DISORDER [None]
  - COAGULOPATHY [None]
  - COUGH [None]
  - DEPRESSED LEVEL OF CONSCIOUSNESS [None]
  - DILATATION VENTRICULAR [None]
  - DYSPNOEA [None]
  - ECHOCARDIOGRAM ABNORMAL [None]
  - GASTROINTESTINAL HAEMORRHAGE [None]
  - HAEMOGLOBIN DECREASED [None]
  - JAUNDICE [None]
  - LIVER FUNCTION TEST ABNORMAL [None]
  - MUCOSAL INFLAMMATION [None]
  - ORAL PAIN [None]
  - PYREXIA [None]
  - SEPSIS [None]
  - ULTRASOUND ABDOMEN ABNORMAL [None]
